FAERS Safety Report 11571823 (Version 1)
Quarter: 2015Q3

REPORT INFORMATION
  Report Type: Spontaneous
  Country: US (occurrence: US)
  Receive Date: 20150929
  Receipt Date: 20150929
  Transmission Date: 20151125
  Serious: No
  Sender: FDA-Public Use
  Company Number: US-SA-2015SA121574

PATIENT

DRUGS (1)
  1. AUBAGIO [Suspect]
     Active Substance: TERIFLUNOMIDE
     Route: 065

REACTIONS (6)
  - Pain [Unknown]
  - Influenza like illness [Unknown]
  - Back pain [Unknown]
  - Nausea [Unknown]
  - Unevaluable event [Unknown]
  - Headache [Unknown]
